FAERS Safety Report 16323883 (Version 1)
Quarter: 2019Q2

REPORT INFORMATION
  Report Type: Spontaneous
  Country: GB (occurrence: GB)
  Receive Date: 20190517
  Receipt Date: 20190517
  Transmission Date: 20190711
  Serious: Yes (Other)
  Sender: FDA-Public Use
  Company Number: GB-ROCHE-2317325

PATIENT
  Age: 64 Year
  Sex: Female

DRUGS (8)
  1. VALIUM [Suspect]
     Active Substance: DIAZEPAM
     Indication: ANXIETY
     Route: 065
     Dates: start: 19670307
  2. VALIUM [Suspect]
     Active Substance: DIAZEPAM
     Indication: DEPRESSION
     Route: 065
     Dates: start: 19670831
  3. ISOCARBOXAZID [Suspect]
     Active Substance: ISOCARBOXAZID
     Indication: ANXIETY
     Route: 065
  4. CONCORDIN [Concomitant]
     Indication: ANXIETY
  5. AMITRIPTYLINE [Suspect]
     Active Substance: AMITRIPTYLINE
     Indication: ANXIETY
     Route: 065
  6. ISOCARBOXAZID [Suspect]
     Active Substance: ISOCARBOXAZID
     Indication: DEPRESSION
  7. AMITRIPTYLINE [Suspect]
     Active Substance: AMITRIPTYLINE
     Indication: DEPRESSION
  8. CONCORDIN [Concomitant]
     Indication: DEPRESSION

REACTIONS (2)
  - Ascites [Recovered/Resolved]
  - Oedema [Recovered/Resolved]
